FAERS Safety Report 10495929 (Version 1)
Quarter: 2014Q4

REPORT INFORMATION
  Report Type: Spontaneous
  Country: FR (occurrence: FR)
  Receive Date: 20141003
  Receipt Date: 20141003
  Transmission Date: 20150528
  Serious: Yes (Life-Threatening)
  Sender: FDA-Public Use
  Company Number: FR-SA-2014SA131703

PATIENT
  Age: 82 Year
  Sex: Male

DRUGS (4)
  1. ELOXATIN [Suspect]
     Active Substance: OXALIPLATIN
     Indication: RECTAL ADENOCARCINOMA
     Route: 042
     Dates: start: 20130722
  2. CALCIUM FOLINATE ^DAKOTA PHARM^ [Suspect]
     Active Substance: LEUCOVORIN CALCIUM
     Indication: RECTAL ADENOCARCINOMA
     Route: 042
     Dates: start: 20130722
  3. FLUOROURACIL. [Suspect]
     Active Substance: FLUOROURACIL
     Indication: RECTAL ADENOCARCINOMA
     Dosage: DOSE: 688 MG BOLUS AND 4128 MG IN CONTINUOUS (ON 46 HOURS EVERY 15 DAYS)
     Route: 042
     Dates: start: 20130722
  4. AVASTIN [Suspect]
     Active Substance: BEVACIZUMAB
     Indication: RECTAL ADENOCARCINOMA
     Route: 042
     Dates: start: 20130807

REACTIONS (2)
  - Acute myocardial infarction [Recovered/Resolved]
  - Myocardial necrosis [None]

NARRATIVE: CASE EVENT DATE: 20130929
